FAERS Safety Report 13269633 (Version 1)
Quarter: 2017Q1

REPORT INFORMATION
  Report Type: Not Available
  Country: FR (occurrence: FR)
  Receive Date: 20170224
  Receipt Date: 20170224
  Transmission Date: 20170428
  Serious: Yes (Hospitalization, Other)
  Sender: FDA-Public Use
  Company Number: FR-PURDUE PHARMA-GBR-2017-0043695

PATIENT
  Age: 55 Year
  Sex: Female

DRUGS (24)
  1. OXYNORMORO [Suspect]
     Active Substance: OXYCODONE
     Dosage: 4 TABELTS 6 TIMES IN DAY [5 MG STRENGTH]
     Route: 048
     Dates: start: 20161119, end: 20161122
  2. OXYNORMORO [Suspect]
     Active Substance: OXYCODONE
     Dosage: 3 TABELTS 6 TIMES [5 MG STRENGTH]
     Route: 048
     Dates: start: 20161118, end: 20161119
  3. IMOVANE [Concomitant]
     Active Substance: ZOPICLONE
     Dosage: 15 MG, DAILY
  4. SUBUTEX [Concomitant]
     Active Substance: BUPRENORPHINE HYDROCHLORIDE
     Dosage: 8 MG, TID
     Dates: end: 20161109
  5. OXYCONTIN [Suspect]
     Active Substance: OXYCODONE HYDROCHLORIDE
     Indication: CERVICOBRACHIAL SYNDROME
     Dosage: 2 TABLET, BID [20 MG STRENGTH]
     Route: 048
     Dates: start: 20161113
  6. OXYNORMORO [Suspect]
     Active Substance: OXYCODONE
     Dosage: 5 MG, SIX IN DAY
     Route: 048
     Dates: start: 20161114
  7. PERFALGAN [Concomitant]
     Active Substance: ACETAMINOPHEN
     Dosage: 1 G, Q8H
  8. CODOLIPRANE [Suspect]
     Active Substance: ACETAMINOPHEN\CODEINE PHOSPHATE
     Indication: PRODUCT USED FOR UNKNOWN INDICATION
     Dosage: UNK
     Route: 048
     Dates: end: 20161123
  9. LAROXYL [Suspect]
     Active Substance: AMITRIPTYLINE
     Indication: PRODUCT USED FOR UNKNOWN INDICATION
     Dosage: 10 DROP, DAILY
     Route: 048
     Dates: start: 20161122, end: 20161123
  10. LAROXYL [Suspect]
     Active Substance: AMITRIPTYLINE
     Dosage: 3 DROP, DAILY
     Route: 048
     Dates: start: 20161114, end: 20161122
  11. LYSANXIA [Concomitant]
     Active Substance: PRAZEPAM
     Dosage: 10 MG, DAILY
  12. OXYNORMORO [Suspect]
     Active Substance: OXYCODONE
     Dosage: 5 MG, Q4H
     Route: 048
     Dates: start: 20161109, end: 20161113
  13. HYDROXYZINE [Concomitant]
     Active Substance: HYDROXYZINE HYDROCHLORIDE
     Dosage: 25 MG, BID
  14. OXYNORMORO [Suspect]
     Active Substance: OXYCODONE
     Indication: CERVICOBRACHIAL SYNDROME
     Dosage: 3 TABELTS 6 TIMES IN DAY [5 MG STRENGTH]
     Route: 048
     Dates: start: 20161122
  15. OXYCONTIN [Suspect]
     Active Substance: OXYCODONE HYDROCHLORIDE
     Dosage: 20 MG, BID
     Route: 048
     Dates: start: 20161110
  16. XANAX [Suspect]
     Active Substance: ALPRAZOLAM
     Indication: PRODUCT USED FOR UNKNOWN INDICATION
     Dosage: 15 MG, DAILY
     Route: 048
     Dates: end: 20161123
  17. CITALOPRAM [Concomitant]
     Active Substance: CITALOPRAM HYDROBROMIDE
     Dosage: 20 MG, BID
  18. OXYCONTIN [Suspect]
     Active Substance: OXYCODONE HYDROCHLORIDE
     Dosage: 10 MG, BID
     Route: 048
     Dates: start: 20161112, end: 20161113
  19. OXYCONTIN [Suspect]
     Active Substance: OXYCODONE HYDROCHLORIDE
     Dosage: 5 MG, BID
     Route: 048
     Dates: start: 20161109, end: 20161110
  20. OMEPRAZOLE. [Concomitant]
     Active Substance: OMEPRAZOLE
     Dosage: 20 MG, DAILY
  21. OXYNORMORO [Suspect]
     Active Substance: OXYCODONE
     Dosage: 1.5 TABLET SIX IN DAY [10 MG STRENGTH]
     Route: 048
     Dates: start: 20161114, end: 20161118
  22. OXYNORMORO [Suspect]
     Active Substance: OXYCODONE
     Dosage: 10 MG, SIX IN DAY
     Route: 048
     Dates: start: 20161113, end: 20161114
  23. FORTIMEL [Concomitant]
     Active Substance: DIETARY SUPPLEMENT
  24. DUPHALAC [Concomitant]
     Active Substance: LACTULOSE
     Dosage: UNK, BID

REACTIONS (3)
  - Overdose [Unknown]
  - Pneumonia aspiration [Recovered/Resolved]
  - Disturbance in attention [Recovered/Resolved]

NARRATIVE: CASE EVENT DATE: 20161123
